FAERS Safety Report 24422836 (Version 4)
Quarter: 2025Q1

REPORT INFORMATION
  Report Type: Spontaneous
  Country: US (occurrence: US)
  Receive Date: 20241010
  Receipt Date: 20250128
  Transmission Date: 20250409
  Serious: Yes (Other)
  Sender: PFIZER
  Company Number: US-PFIZER INC-202400273726

PATIENT
  Age: 79 Year
  Sex: Male
  Weight: 89.81 kg

DRUGS (1)
  1. NURTEC ODT [Suspect]
     Active Substance: RIMEGEPANT SULFATE
     Indication: Hemiplegic migraine
     Route: 048

REACTIONS (1)
  - Prostate cancer [Unknown]
